FAERS Safety Report 23224208 (Version 2)
Quarter: 2023Q4

REPORT INFORMATION
  Report Type: Spontaneous
  Country: US (occurrence: US)
  Receive Date: 20231124
  Receipt Date: 20231221
  Transmission Date: 20240110
  Serious: No
  Sender: FDA-Public Use
  Company Number: US-GSK-US2023159936

PATIENT
  Age: 52 Year
  Sex: Female

DRUGS (1)
  1. BENLYSTA [Suspect]
     Active Substance: BELIMUMAB
     Indication: Systemic lupus erythematosus
     Dosage: UNK UNK, WE
     Dates: start: 20231019, end: 202311

REACTIONS (5)
  - Nausea [Unknown]
  - Asthenia [Unknown]
  - Stomatitis [Not Recovered/Not Resolved]
  - Adverse drug reaction [Unknown]
  - Product dose omission issue [Unknown]

NARRATIVE: CASE EVENT DATE: 20231001
